FAERS Safety Report 19274592 (Version 2)
Quarter: 2021Q2

REPORT INFORMATION
  Report Type: Spontaneous
  Country: US (occurrence: US)
  Receive Date: 20210519
  Receipt Date: 20210617
  Transmission Date: 20210717
  Serious: Yes (Hospitalization, Other)
  Sender: FDA-Public Use
  Company Number: US-ACCORD-225225

PATIENT
  Age: 49 Year
  Sex: Female

DRUGS (3)
  1. FLUOROURACIL. [Suspect]
     Active Substance: FLUOROURACIL
     Indication: NEUROENDOCRINE TUMOUR
  2. FOLINIC ACID [Concomitant]
     Active Substance: LEUCOVORIN
     Indication: NEUROENDOCRINE TUMOUR
  3. OXALIPLATIN. [Concomitant]
     Active Substance: OXALIPLATIN
     Indication: NEUROENDOCRINE TUMOUR

REACTIONS (4)
  - Off label use [Unknown]
  - Partial seizures [Unknown]
  - Cerebrovascular accident [Unknown]
  - Vasospasm [Unknown]
